FAERS Safety Report 9001867 (Version 1)
Quarter: 2013Q1

REPORT INFORMATION
  Report Type: Spontaneous
  Country: US (occurrence: US)
  Receive Date: 20130108
  Receipt Date: 20130108
  Transmission Date: 20140127
  Serious: Yes (Hospitalization, Other)
  Sender: FDA-Public Use
  Company Number: US-ELI_LILLY_AND_COMPANY-US201201007958

PATIENT
  Sex: Female

DRUGS (3)
  1. BYETTA [Suspect]
     Dosage: UNK
     Route: 058
     Dates: end: 20090313
  2. METFORMIN [Concomitant]
  3. GLYBURIDE [Concomitant]

REACTIONS (3)
  - Diabetic ketoacidosis [Recovered/Resolved]
  - Pancreatitis [Recovering/Resolving]
  - Hypertriglyceridaemia [Unknown]
